FAERS Safety Report 7802463-8 (Version None)
Quarter: 2011Q4

REPORT INFORMATION
  Report Type: 
  Country: None (occurrence: None)
  Receive Date: 20111007
  Receipt Date: 20110927
  Transmission Date: 20120403
  Serious: Yes (Death, Hospitalization)
  Sender: FDA-Public Use
  Company Number: US-GLAXOSMITHKLINE-A0942771A

PATIENT
  Age: 46 Year
  Sex: Female

DRUGS (4)
  1. CHEMOTHERAPY [Concomitant]
  2. CAPECITABINE [Concomitant]
     Route: 048
  3. TAXOL [Suspect]
     Indication: PRODUCT USED FOR UNKNOWN INDICATION
  4. TYKERB [Suspect]
     Indication: BREAST CANCER METASTATIC
     Dosage: 1250MG PER DAY
     Route: 048
     Dates: start: 20110407

REACTIONS (16)
  - NEUTROPENIC SEPSIS [None]
  - HAEMATURIA [None]
  - RENAL FAILURE ACUTE [None]
  - ILL-DEFINED DISORDER [None]
  - HYPOTENSION [None]
  - PAIN [None]
  - CARDIOGENIC SHOCK [None]
  - DIARRHOEA [None]
  - SEPTIC SHOCK [None]
  - ABDOMINAL DISTENSION [None]
  - PANCYTOPENIA [None]
  - URINARY TRACT INFECTION [None]
  - ASTHENIA [None]
  - HYPOKALAEMIA [None]
  - FATIGUE [None]
  - ILEUS PARALYTIC [None]
